FAERS Safety Report 10031882 (Version 2)
Quarter: 2014Q2

REPORT INFORMATION
  Report Type: Spontaneous
  Country: US (occurrence: US)
  Receive Date: 20140324
  Receipt Date: 20140410
  Transmission Date: 20141212
  Serious: Yes (Other)
  Sender: FDA-Public Use
  Company Number: US-PFIZER INC-2014083236

PATIENT
  Age: 28 Year
  Sex: Female
  Weight: 74.83 kg

DRUGS (4)
  1. EFFEXOR XR [Suspect]
     Indication: ANXIETY
     Dosage: 150 MG, DAILY
     Dates: start: 2002
  2. EFFEXOR XR [Suspect]
     Indication: DEPRESSION
  3. PAXIL [Concomitant]
     Indication: DEPRESSION
     Dosage: 35 MG, DAILY
  4. PAXIL [Concomitant]
     Indication: ANXIETY

REACTIONS (6)
  - Systemic lupus erythematosus [Not Recovered/Not Resolved]
  - Self-injurious ideation [Unknown]
  - Violence-related symptom [Unknown]
  - Fibromyalgia [Not Recovered/Not Resolved]
  - Drug ineffective [Unknown]
  - Thinking abnormal [Unknown]
